FAERS Safety Report 20622836 (Version 1)
Quarter: 2022Q1

REPORT INFORMATION
  Report Type: Spontaneous
  Country: US (occurrence: US)
  Receive Date: 20220322
  Receipt Date: 20220322
  Transmission Date: 20220424
  Serious: No
  Sender: FDA-Public Use
  Company Number: US-INSUD PHARMA-2203US00980

PATIENT

DRUGS (2)
  1. TESTOSTERONE [Suspect]
     Active Substance: TESTOSTERONE
     Indication: Hypogonadism
     Dosage: ONE PUMP ON EACH ARM ONCE A DAY
     Route: 061
     Dates: start: 2021, end: 202112
  2. TESTOSTERONE [Suspect]
     Active Substance: TESTOSTERONE
     Dosage: 1 PUMP ONCE DAILY
     Dates: start: 202112

REACTIONS (1)
  - Blood testosterone increased [Recovered/Resolved]

NARRATIVE: CASE EVENT DATE: 20210101
